FAERS Safety Report 4299095-8 (Version None)
Quarter: 2004Q1

REPORT INFORMATION
  Report Type: 
  Country: None (occurrence: None)
  Receive Date: 20040217
  Receipt Date: 20040206
  Transmission Date: 20041129
  Serious: Yes (Hospitalization)
  Sender: FDA-Public Use
  Company Number: 2003190408DK

PATIENT
  Age: 60 Year
  Sex: Male

DRUGS (4)
  1. CAMPTOSAR [Suspect]
     Indication: COLON CANCER METASTATIC
     Dosage: 223 MG, CYCLIC, IV
     Route: 042
     Dates: start: 20030908, end: 20030908
  2. FLUOROURACIL [Suspect]
     Indication: COLON CANCER METASTATIC
     Dosage: SEE IMAGE , IV BOLUS
     Route: 040
     Dates: start: 20030908, end: 20030908
  3. FLUOROURACIL [Suspect]
     Indication: COLON CANCER METASTATIC
     Dosage: SEE IMAGE , IV BOLUS
     Route: 040
     Dates: start: 20030908, end: 20030909
  4. FOLINIC ACID (FOLINIC ACID) [Suspect]
     Indication: COLON CANCER METASTATIC
     Dosage: 124 MG, CYCLIC, IV
     Route: 042
     Dates: start: 20030908, end: 20030909

REACTIONS (3)
  - ANOREXIA [None]
  - DYSPHAGIA [None]
  - WEIGHT DECREASED [None]
